FAERS Safety Report 17605262 (Version 1)
Quarter: 2020Q1

REPORT INFORMATION
  Report Type: Spontaneous
  Country: US (occurrence: US)
  Receive Date: 20200330
  Receipt Date: 20200330
  Transmission Date: 20200409
  Serious: Yes (Life-Threatening, Hospitalization)
  Sender: FDA-Public Use
  Company Number: None

PATIENT
  Age: 59 Year
  Sex: Male
  Weight: 112 kg

DRUGS (1)
  1. LOSARTAN (LOSARTAN 25MG TAB) [Suspect]
     Active Substance: LOSARTAN
     Indication: HYPERTENSION
     Route: 048
     Dates: start: 20180816, end: 20181003

REACTIONS (4)
  - Mouth swelling [None]
  - Dyspnoea [None]
  - Tongue oedema [None]
  - Hypersensitivity [None]

NARRATIVE: CASE EVENT DATE: 20180921
